FAERS Safety Report 25684159 (Version 2)
Quarter: 2025Q3

REPORT INFORMATION
  Report Type: Report from Study
  Country: US (occurrence: US)
  Receive Date: 20250815
  Receipt Date: 20250912
  Transmission Date: 20251020
  Serious: Yes (Hospitalization, Other)
  Sender: SUNOVION
  Company Number: US-SUMITOMO PHARMA SWITZERLAND GMBH-2024SPA003453

PATIENT
  Age: 66 Year
  Sex: Male

DRUGS (20)
  1. ORGOVYX [Suspect]
     Active Substance: RELUGOLIX
     Indication: Prostate cancer
     Dosage: 360 MG, SINGLE
     Route: 048
     Dates: start: 202301, end: 202301
  2. ORGOVYX [Suspect]
     Active Substance: RELUGOLIX
     Dosage: 120 MG, QD
     Route: 048
     Dates: start: 202301
  3. ABIRATERONE ACETATE [Suspect]
     Active Substance: ABIRATERONE ACETATE
     Indication: Product used for unknown indication
  4. ACETAMINOPHEN [Concomitant]
     Active Substance: ACETAMINOPHEN
  5. FAMOTIDINE [Concomitant]
     Active Substance: FAMOTIDINE
  6. NUBEQA [Concomitant]
     Active Substance: DAROLUTAMIDE
  7. PANTOPRAZOLE [Concomitant]
     Active Substance: PANTOPRAZOLE
  8. SOTALOL [Concomitant]
     Active Substance: SOTALOL
  9. TEMAZEPAM [Concomitant]
     Active Substance: TEMAZEPAM
     Indication: Insomnia
  10. TRELEGY ELLIPTA [Concomitant]
     Active Substance: FLUTICASONE FUROATE\UMECLIDINIUM BROMIDE\VILANTEROL TRIFENATATE
  11. VITAMIN D3 [Concomitant]
     Active Substance: CHOLECALCIFEROL
  12. WARFARIN [Concomitant]
     Active Substance: WARFARIN
  13. DILTIAZEM [Concomitant]
     Active Substance: DILTIAZEM
  14. PREDNISONE [Concomitant]
     Active Substance: PREDNISONE
  15. SUCRALFATE [Concomitant]
     Active Substance: SUCRALFATE
  16. GLIMEPIRIDE [Concomitant]
     Active Substance: GLIMEPIRIDE
  17. RYBELSUS [Concomitant]
     Active Substance: SEMAGLUTIDE
  18. IRON [Concomitant]
     Active Substance: IRON
  19. TYLENOL [Concomitant]
     Active Substance: ACETAMINOPHEN
  20. LASIX [Concomitant]
     Active Substance: FUROSEMIDE

REACTIONS (31)
  - Urosepsis [Recovered/Resolved]
  - Atrial fibrillation [Unknown]
  - Urinary tract infection [Unknown]
  - Diabetes mellitus [Unknown]
  - Cardiac pacemaker insertion [Unknown]
  - Tremor [Unknown]
  - Balance disorder [Unknown]
  - Heart rate increased [Unknown]
  - Vertigo [Unknown]
  - Dyspnoea [Unknown]
  - Mood swings [Unknown]
  - Gait disturbance [Unknown]
  - Throat tightness [Unknown]
  - Gastrointestinal disorder [Unknown]
  - Bronchoscopic lung volume reduction [Unknown]
  - Blood iron decreased [Unknown]
  - Feeling abnormal [Unknown]
  - Feeling drunk [Unknown]
  - Dysphagia [Unknown]
  - Early satiety [Unknown]
  - Abdominal discomfort [Unknown]
  - Dizziness [Unknown]
  - Hot flush [Unknown]
  - Weight increased [Unknown]
  - Bone pain [Unknown]
  - Arthralgia [Unknown]
  - Blood glucose increased [Unknown]
  - Asthenia [Unknown]
  - Fatigue [Unknown]
  - Insomnia [Unknown]
  - Red blood cell count decreased [Unknown]
